FAERS Safety Report 18662000 (Version 2)
Quarter: 2021Q1

REPORT INFORMATION
  Report Type: Spontaneous
  Country: US (occurrence: US)
  Receive Date: 20201224
  Receipt Date: 20210312
  Transmission Date: 20210419
  Serious: No
  Sender: FDA-Public Use
  Company Number: US-TAKEDA-2020TUS057290

PATIENT
  Age: 52 Year
  Sex: Female

DRUGS (9)
  1. LIALDA [Suspect]
     Active Substance: MESALAMINE
     Dosage: UNK
     Route: 058
     Dates: start: 20200809, end: 20200809
  2. HUMIRA [Suspect]
     Active Substance: ADALIMUMAB
     Dosage: 80 MILLIGRAM, SINGLE
     Route: 058
     Dates: start: 20200809, end: 20200809
  3. LIALDA [Suspect]
     Active Substance: MESALAMINE
     Dosage: UNK
     Route: 058
     Dates: start: 20200822, end: 20200822
  4. HUMIRA [Suspect]
     Active Substance: ADALIMUMAB
     Indication: CROHN^S DISEASE
     Dosage: 40 MILLIGRAM, Q2WEEKS
     Route: 058
     Dates: start: 2020
  5. HUMIRA [Suspect]
     Active Substance: ADALIMUMAB
     Dosage: 80 MILLIGRAM, SINGLE
     Route: 058
     Dates: start: 20200808, end: 20200808
  6. HUMIRA [Suspect]
     Active Substance: ADALIMUMAB
     Dosage: 80 MILLIGRAM, SINGLE
     Route: 058
     Dates: start: 20200822, end: 20200822
  7. LIALDA [Suspect]
     Active Substance: MESALAMINE
     Indication: PRODUCT USED FOR UNKNOWN INDICATION
     Dosage: 80 MILLIGRAM
     Route: 058
     Dates: start: 20200808
  8. LIALDA [Suspect]
     Active Substance: MESALAMINE
     Dosage: UNK
     Route: 058
     Dates: start: 20200808, end: 20200808
  9. LIALDA [Suspect]
     Active Substance: MESALAMINE
     Dosage: UNK
     Dates: start: 20201011, end: 20201011

REACTIONS (19)
  - Decreased appetite [Not Recovered/Not Resolved]
  - Insomnia [Unknown]
  - Sinus pain [Unknown]
  - Paranasal sinus hypersecretion [Recovering/Resolving]
  - Abnormal loss of weight [Not Recovered/Not Resolved]
  - Headache [Recovered/Resolved]
  - Fatigue [Not Recovered/Not Resolved]
  - Dyspepsia [Recovering/Resolving]
  - Weight decreased [Recovered/Resolved]
  - Sinus headache [Recovering/Resolving]
  - Feeling hot [Recovered/Resolved]
  - Abdominal pain [Not Recovered/Not Resolved]
  - Pain [Recovered/Resolved]
  - Nausea [Recovered/Resolved]
  - Diarrhoea [Not Recovered/Not Resolved]
  - Hormone level abnormal [Unknown]
  - Constipation [Not Recovered/Not Resolved]
  - Anxiety [Recovering/Resolving]
  - Depression [Unknown]

NARRATIVE: CASE EVENT DATE: 2020
